FAERS Safety Report 4552718-8 (Version None)
Quarter: 2005Q1

REPORT INFORMATION
  Report Type: 
  Country: None (occurrence: None)
  Receive Date: 20050114
  Receipt Date: 20050105
  Transmission Date: 20050727
  Serious: Yes (Other)
  Sender: FDA-Public Use
  Company Number: US-AMGEN-US106391

PATIENT
  Sex: Male

DRUGS (3)
  1. ENBREL [Suspect]
     Indication: ANKYLOSING SPONDYLITIS
     Route: 058
     Dates: start: 20031118, end: 20041218
  2. COZAAR [Concomitant]
  3. COZAAR [Concomitant]

REACTIONS (10)
  - ALANINE AMINOTRANSFERASE INCREASED [None]
  - ARTHRITIS [None]
  - ASPARTATE AMINOTRANSFERASE INCREASED [None]
  - CONJUNCTIVITIS [None]
  - DISEASE RECURRENCE [None]
  - FEBRILE INFECTION [None]
  - HYPOTENSION [None]
  - MEDICATION ERROR [None]
  - NEPHROLITHIASIS [None]
  - STOMATITIS [None]
